FAERS Safety Report 16382964 (Version 1)
Quarter: 2019Q2

REPORT INFORMATION
  Report Type: Spontaneous
  Country: RO (occurrence: RO)
  Receive Date: 20190603
  Receipt Date: 20190603
  Transmission Date: 20190711
  Serious: Yes (Death, Other)
  Sender: FDA-Public Use
  Company Number: RO-PFIZER INC-2019233801

PATIENT
  Age: 72 Year

DRUGS (1)
  1. SUTENT [Suspect]
     Active Substance: SUNITINIB MALATE
     Dosage: 37.5 MG, UNK

REACTIONS (5)
  - Jaw fistula [Unknown]
  - Haemorrhage [Unknown]
  - Death [Fatal]
  - Vascular rupture [Unknown]
  - Osteonecrosis of jaw [Unknown]
